FAERS Safety Report 14172742 (Version 2)
Quarter: 2017Q4

REPORT INFORMATION
  Report Type: Spontaneous
  Country: GB (occurrence: GB)
  Receive Date: 20171109
  Receipt Date: 20171110
  Transmission Date: 20180321
  Serious: Yes (Hospitalization)
  Sender: FDA-Public Use
  Company Number: GB-009507513-1711GBR001928

PATIENT
  Age: 58 Year
  Sex: Male

DRUGS (11)
  1. AMLODIPINE [Concomitant]
     Active Substance: AMLODIPINE BESYLATE
     Indication: BLOOD PRESSURE MEASUREMENT
     Dosage: 10 MG, QD (1 IN ONE DAY)
  2. DOXAZOSIN [Concomitant]
     Active Substance: DOXAZOSIN\DOXAZOSIN MESYLATE
     Indication: BLOOD PRESSURE MEASUREMENT
     Dosage: 8 MG (4 MG, 2 IN 1 D)
  3. DEXAMETHASONE. [Suspect]
     Active Substance: DEXAMETHASONE
     Indication: PRODUCT USED FOR UNKNOWN INDICATION
     Dosage: 0.5 MG, DAILY (0.5 MG,1 D)
     Route: 065
     Dates: start: 201705, end: 201708
  4. AXITINIB [Suspect]
     Active Substance: AXITINIB
     Dosage: 5 MG, DAILY (5 MG, 1 D)
     Route: 065
     Dates: start: 201705
  5. DEXAMETHASONE. [Suspect]
     Active Substance: DEXAMETHASONE
     Dosage: UNK
     Route: 065
  6. AXITINIB [Suspect]
     Active Substance: AXITINIB
     Indication: RENAL CELL CARCINOMA
     Dosage: 10 MG (5 MG, 2 IN 1 D)
     Route: 065
     Dates: start: 201703
  7. DEXAMETHASONE. [Suspect]
     Active Substance: DEXAMETHASONE
     Dosage: 500 UG, UNK (500 MCG)
     Route: 065
     Dates: start: 2017
  8. DEXAMETHASONE. [Suspect]
     Active Substance: DEXAMETHASONE
     Dosage: 1 MG, DAILY (1 MG,1 D)
     Route: 065
     Dates: start: 201708
  9. INDAPAMIDE. [Concomitant]
     Active Substance: INDAPAMIDE
     Indication: BLOOD PRESSURE MANAGEMENT
     Route: 065
  10. DEXAMETHASONE. [Suspect]
     Active Substance: DEXAMETHASONE
     Dosage: 2 MG, DAILY (2 MG,1 D)
     Route: 065
     Dates: start: 201708
  11. DEXAMETHASONE. [Suspect]
     Active Substance: DEXAMETHASONE
     Dosage: 1 MG, DAILY (1 MG,1 D)
     Route: 065
     Dates: start: 201704

REACTIONS (8)
  - Diarrhoea [Recovered/Resolved]
  - Weight increased [Unknown]
  - Palmar-plantar erythrodysaesthesia syndrome [Unknown]
  - Stomatitis [Unknown]
  - Depressed mood [Recovered/Resolved]
  - Depression [Unknown]
  - Anxiety [Recovered/Resolved]
  - Neoplasm progression [Unknown]

NARRATIVE: CASE EVENT DATE: 201704
